FAERS Safety Report 4767623-1 (Version None)
Quarter: 2005Q3

REPORT INFORMATION
  Report Type: 
  Country: None (occurrence: None)
  Receive Date: 20050913
  Receipt Date: 20050901
  Transmission Date: 20060218
  Serious: Yes (Hospitalization)
  Sender: FDA-Public Use
  Company Number: FR-BRISTOL-MYERS SQUIBB COMPANY-13097886

PATIENT
  Age: 77 Year
  Sex: Female

DRUGS (5)
  1. ELISOR [Suspect]
     Route: 048
     Dates: start: 20000101, end: 20050725
  2. SOLU-MEDROL [Suspect]
     Route: 048
     Dates: start: 19980101
  3. NOVATREX [Concomitant]
  4. VIOXX [Concomitant]
  5. VOLTAREN [Concomitant]

REACTIONS (5)
  - ARTHRALGIA [None]
  - BACK PAIN [None]
  - MUSCLE SPASMS [None]
  - PAIN IN EXTREMITY [None]
  - TENDONITIS [None]
